FAERS Safety Report 4931033-4 (Version None)
Quarter: 2006Q1

REPORT INFORMATION
  Report Type: 
  Country: None (occurrence: None)
  Receive Date: 20060227
  Receipt Date: 20060209
  Transmission Date: 20060701
  Serious: Yes (Death, Hospitalization)
  Sender: FDA-Public Use
  Company Number: 2005-0008316

PATIENT
  Age: 41 Year
  Sex: Female

DRUGS (2)
  1. TENOFOVIR DISOPROXOL FUMARATE (TENOFOVIR DISOPROXIL FUMARATE) [Suspect]
     Indication: HIV INFECTION
     Dosage: 300 MG, ORAL
     Route: 048
  2. CBV (ZIODUVINDE W/LAMIVUDINE) [Concomitant]

REACTIONS (6)
  - BLOOD POTASSIUM DECREASED [None]
  - DEHYDRATION [None]
  - GASTROENTERITIS [None]
  - IMMUNOSUPPRESSION [None]
  - MENINGITIS CRYPTOCOCCAL [None]
  - RENAL FAILURE [None]
